FAERS Safety Report 21602721 (Version 1)
Quarter: 2022Q4

REPORT INFORMATION
  Report Type: Spontaneous
  Country: US (occurrence: None)
  Receive Date: 20221115
  Receipt Date: 20221115
  Transmission Date: 20230113
  Serious: Yes (Hospitalization, Other)
  Sender: FDA-Public Use
  Company Number: None

PATIENT
  Age: 83 Year
  Sex: Male

DRUGS (1)
  1. REPATHA [Suspect]
     Active Substance: EVOLOCUMAB
     Dosage: 420 MG EVERY 28 DAYS SUBCUTANEOUS?
     Route: 058

REACTIONS (16)
  - Tinnitus [None]
  - Dizziness [None]
  - Vertigo [None]
  - Dizziness [None]
  - Neck pain [None]
  - Headache [None]
  - Fatigue [None]
  - Neuropathy peripheral [None]
  - Feeling abnormal [None]
  - Muscular weakness [None]
  - Balance disorder [None]
  - Fall [None]
  - Blood pressure increased [None]
  - Thyroid mass [None]
  - Fear of falling [None]
  - Therapy interrupted [None]
